FAERS Safety Report 7957096-X (Version None)
Quarter: 2011Q4

REPORT INFORMATION
  Report Type: 
  Country: None (occurrence: None)
  Receive Date: 20111205
  Receipt Date: 20111125
  Transmission Date: 20120403
  Serious: Yes (Death, Hospitalization)
  Sender: FDA-Public Use
  Company Number: AT-GENZYME-CLOF-1001800

PATIENT
  Sex: Female
  Weight: 13 kg

DRUGS (10)
  1. TRIMETHOPRIM [Concomitant]
     Indication: PROPHYLAXIS
     Dosage: 80 MG, QD
     Route: 048
     Dates: start: 20110905, end: 20110921
  2. AMPHOTERICIN B [Concomitant]
     Indication: PROPHYLAXIS
     Dosage: 150 MG, QD
     Route: 048
     Dates: start: 20110905, end: 20110921
  3. GLYCOPEPTIDE ANTIBACTERIALS [Concomitant]
     Indication: ANTIBIOTIC PROPHYLAXIS
     Dosage: UNK
     Route: 065
  4. DAUNOXOME [Suspect]
     Indication: ACUTE MYELOID LEUKAEMIA RECURRENT
     Dosage: 35 MG, QD
     Route: 042
     Dates: start: 20110905, end: 20110909
  5. VORICONAZOLE [Concomitant]
     Indication: PROPHYLAXIS
     Dosage: 200 MG, QD
     Route: 048
     Dates: start: 20110915, end: 20110921
  6. EVOLTRA [Suspect]
     Indication: ACUTE MYELOID LEUKAEMIA RECURRENT
     Dosage: 17.5 MG, QD
     Route: 042
     Dates: start: 20110905, end: 20110909
  7. CYTARABINE [Suspect]
     Indication: ACUTE MYELOID LEUKAEMIA RECURRENT
     Dosage: 1167 MG, QD
     Route: 042
     Dates: start: 20110905, end: 20110909
  8. SULFAMETHOXAZOLE [Concomitant]
     Indication: PROPHYLAXIS
     Dosage: 400 MG, QD
     Route: 048
     Dates: start: 20110905, end: 20110921
  9. PAROMOMYCIN [Concomitant]
     Indication: PROPHYLAXIS
     Dosage: 450 MG, QD
     Route: 048
     Dates: start: 20110905, end: 20110921
  10. TEICOPLANIN [Concomitant]
     Indication: PROPHYLAXIS
     Dosage: 140 MG, QD
     Route: 042
     Dates: start: 20110905, end: 20110921

REACTIONS (2)
  - ACUTE MYELOID LEUKAEMIA [None]
  - PNEUMONIA STREPTOCOCCAL [None]
